FAERS Safety Report 18044827 (Version 3)
Quarter: 2020Q3

REPORT INFORMATION
  Report Type: Spontaneous
  Country: ES (occurrence: ES)
  Receive Date: 20200720
  Receipt Date: 20200811
  Transmission Date: 20201103
  Serious: Yes (Life-Threatening, Hospitalization, Other)
  Sender: FDA-Public Use
  Company Number: ES-MYLANLABS-2020M1063992

PATIENT
  Age: 22 Year
  Sex: Female

DRUGS (25)
  1. PREDNISONE. [Suspect]
     Active Substance: PREDNISONE
     Indication: SYSTEMIC LUPUS ERYTHEMATOSUS
     Dosage: 60 MG, Q24H
     Route: 065
  2. RITUXIMAB. [Suspect]
     Active Substance: RITUXIMAB
     Dosage: 1000 MILLIGRAM, QD (DAY 0 AND DAY 15 EVERY FIVE MONTHS)
     Route: 042
  3. AZATHIOPRINE. [Suspect]
     Active Substance: AZATHIOPRINE
     Indication: DERMATOMYOSITIS
     Dosage: 150 MG
     Route: 065
     Dates: start: 201905
  4. AZATHIOPRINE. [Suspect]
     Active Substance: AZATHIOPRINE
     Dosage: 150 MILLIGRAM, QD
     Route: 065
     Dates: start: 201905
  5. AZATHIOPRINE. [Suspect]
     Active Substance: AZATHIOPRINE
     Dosage: 100 MG
     Route: 065
     Dates: start: 2016
  6. AZATHIOPRINE. [Suspect]
     Active Substance: AZATHIOPRINE
     Dosage: 75 MG
     Route: 065
     Dates: start: 2016
  7. AZATHIOPRINE. [Suspect]
     Active Substance: AZATHIOPRINE
     Dosage: 75 MILLIGRAM, QD
     Route: 065
  8. HYDROXYCHLOROQUINE [Concomitant]
     Active Substance: HYDROXYCHLOROQUINE
     Indication: SYSTEMIC LUPUS ERYTHEMATOSUS
     Dosage: 200 MILLIGRAM, QD, 1 DOSE 24 HOURS
     Route: 065
  9. AZATHIOPRINE. [Suspect]
     Active Substance: AZATHIOPRINE
     Dosage: 100 MILLIGRAM, QD
     Route: 065
  10. HYDROXYCHLOROQUINE [Concomitant]
     Active Substance: HYDROXYCHLOROQUINE
     Indication: RASH
     Dosage: 200 MG, Q24H
     Route: 065
  11. PREDNISONE. [Suspect]
     Active Substance: PREDNISONE
     Dosage: 60 MILLIGRAM, QD
     Dates: start: 2015
  12. RITUXIMAB. [Suspect]
     Active Substance: RITUXIMAB
     Dosage: 500 MG SINGLE DOSE
     Route: 065
     Dates: start: 201905
  13. AZATHIOPRINE. [Suspect]
     Active Substance: AZATHIOPRINE
     Dosage: 75 MG
     Route: 065
  14. AZATHIOPRINE. [Suspect]
     Active Substance: AZATHIOPRINE
     Dosage: 150 MILLIGRAM, QD
     Route: 065
  15. AZATHIOPRINE. [Suspect]
     Active Substance: AZATHIOPRINE
     Dosage: 75 MILLIGRAM, QD
     Dates: start: 2019
  16. AZATHIOPRINE. [Suspect]
     Active Substance: AZATHIOPRINE
     Dosage: 150 MG, Q24H
     Route: 065
     Dates: start: 2016
  17. PREDNISONE. [Suspect]
     Active Substance: PREDNISONE
     Indication: DERMATOMYOSITIS
     Dosage: 60 MILLIGRAM, QD, 1 DOSE 24 HOURS
     Route: 065
  18. RITUXIMAB. [Suspect]
     Active Substance: RITUXIMAB
     Dosage: 1000 MILLIGRAM, BOLUS, DAY 0 AND DAY 15 EVERY FIVE MONTHS
     Route: 042
     Dates: start: 2016, end: 2019
  19. HYDROXYCHLOROQUINE [Concomitant]
     Active Substance: HYDROXYCHLOROQUINE
     Indication: DERMATOMYOSITIS
     Dosage: 200 MILLIGRAM, QD
     Route: 065
     Dates: start: 2015
  20. PREDNISONE. [Suspect]
     Active Substance: PREDNISONE
     Dosage: UNK
  21. PREDNISONE. [Suspect]
     Active Substance: PREDNISONE
     Dosage: 5 MILLIGRAM
  22. RITUXIMAB. [Suspect]
     Active Substance: RITUXIMAB
     Dosage: 500 MILLIGRAM, QD, SINGLE
     Route: 065
     Dates: start: 201905
  23. AZATHIOPRINE. [Suspect]
     Active Substance: AZATHIOPRINE
     Dosage: 100 MG
     Route: 065
  24. AZATHIOPRINE. [Suspect]
     Active Substance: AZATHIOPRINE
     Dosage: 100 MILLIGRAM, QD
     Dates: start: 2019
  25. RITUXIMAB. [Suspect]
     Active Substance: RITUXIMAB
     Indication: DERMATOMYOSITIS
     Dosage: 1000 MG (DAY 0 AND DAY 15 EVERY FIVE MONTHS)
     Route: 042
     Dates: start: 2016

REACTIONS (17)
  - Vomiting [Recovering/Resolving]
  - Psychotic disorder [Unknown]
  - Aggression [Unknown]
  - Discomfort [Unknown]
  - Hiccups [Recovering/Resolving]
  - Cerebral toxoplasmosis [Recovering/Resolving]
  - Disorientation [Unknown]
  - Cranial nerve injury [Recovering/Resolving]
  - Off label use [Unknown]
  - Dysphagia [Recovering/Resolving]
  - Haematotoxicity [Unknown]
  - Nervousness [Unknown]
  - Facial paralysis [Recovering/Resolving]
  - Reactive psychosis [Unknown]
  - Dysarthria [Unknown]
  - Product use in unapproved indication [Unknown]
  - Headache [Recovering/Resolving]

NARRATIVE: CASE EVENT DATE: 2016
